FAERS Safety Report 5717525-9 (Version None)
Quarter: 2008Q2

REPORT INFORMATION
  Report Type: 
  Country: None (occurrence: None)
  Receive Date: 20080425
  Receipt Date: 20080414
  Transmission Date: 20081010
  Serious: Yes (Other)
  Sender: FDA-Public Use
  Company Number: AT-BRISTOL-MYERS SQUIBB COMPANY-14160790

PATIENT
  Age: 17 Year
  Sex: Male

DRUGS (1)
  1. IFOSFAMIDE [Suspect]
     Dosage: 1 DOSAGE FORM = 2.8 G/M**2.
     Route: 042
     Dates: start: 20070929, end: 20071001

REACTIONS (7)
  - AGITATION [None]
  - CONFUSIONAL STATE [None]
  - ELECTROENCEPHALOGRAM ABNORMAL [None]
  - ENCEPHALOPATHY [None]
  - HYPOACUSIS [None]
  - PAIN IN EXTREMITY [None]
  - SOMNOLENCE [None]
